FAERS Safety Report 5737690-7 (Version None)
Quarter: 2008Q2

REPORT INFORMATION
  Report Type: 
  Country: None (occurrence: None)
  Receive Date: 20080514
  Receipt Date: 20080502
  Transmission Date: 20081010
  Serious: Yes (Death)
  Sender: FDA-Public Use
  Company Number: AU-ROCHE-562332

PATIENT
  Sex: Male

DRUGS (2)
  1. DIAZEPAM [Suspect]
     Dosage: REPORTED AS: LONG TERM THERAPY.
     Route: 048
  2. QUETIAPINE FUMARATE [Suspect]
     Dosage: REPORTED AS: LONG TERM THERAPY.
     Route: 048

REACTIONS (1)
  - SUDDEN DEATH [None]
